FAERS Safety Report 5514321-2 (Version None)
Quarter: 2007Q4

REPORT INFORMATION
  Report Type: 
  Country: None (occurrence: None)
  Receive Date: 20071113
  Receipt Date: 20070413
  Transmission Date: 20080405
  Serious: No
  Sender: FDA-Public Use
  Company Number: A0647199A

PATIENT
  Age: 67 Year
  Sex: Male

DRUGS (4)
  1. COREG [Suspect]
     Dosage: 25MG TWICE PER DAY
     Route: 048
     Dates: start: 20050301
  2. NORVASC [Concomitant]
  3. AVAPRO [Concomitant]
  4. UNKNOWN MEDICATION [Concomitant]

REACTIONS (3)
  - DIZZINESS [None]
  - DRUG INEFFECTIVE [None]
  - SOMNOLENCE [None]
